FAERS Safety Report 6495187-3 (Version None)
Quarter: 2009Q4

REPORT INFORMATION
  Report Type: 
  Country: None (occurrence: None)
  Receive Date: 20091214
  Receipt Date: 20090512
  Transmission Date: 20100525
  Serious: No
  Sender: FDA-Public Use
  Company Number: US-BRISTOL-MYERS SQUIBB COMPANY-14619514

PATIENT
  Age: 25 Year
  Sex: Female
  Weight: 63 kg

DRUGS (3)
  1. ABILIFY [Suspect]
     Dosage: ABILIFT TABS 5 MG.
     Route: 048
     Dates: start: 20090218
  2. VITAMIN TAB [Concomitant]
  3. LORAZEPAM [Concomitant]
     Indication: ANXIETY
     Dosage: 1-2 TIMES MONTHLY.

REACTIONS (1)
  - PREGNANCY [None]
